FAERS Safety Report 15019861 (Version 2)
Quarter: 2018Q4

REPORT INFORMATION
  Report Type: Spontaneous
  Country: None (occurrence: HU)
  Receive Date: 20180618
  Receipt Date: 20181002
  Transmission Date: 20190204
  Serious: Yes (Other)
  Sender: FDA-Public Use
  Company Number: HU-ORION CORPORATION ORION PHARMA-18_00003814

PATIENT
  Age: 42 Year
  Sex: Male

DRUGS (8)
  1. CYCLOPHOSPHAMIDE. [Suspect]
     Active Substance: CYCLOPHOSPHAMIDE
     Dosage: 6 CYCLES
     Route: 065
  2. AZATHIOPRINE. [Suspect]
     Active Substance: AZATHIOPRINE
     Indication: GRANULOMATOSIS WITH POLYANGIITIS
     Route: 065
  3. ENTECAVIR. [Suspect]
     Active Substance: ENTECAVIR
     Indication: HEPATITIS B
     Route: 065
  4. CYCLOPHOSPHAMIDE. [Suspect]
     Active Substance: CYCLOPHOSPHAMIDE
     Indication: GRANULOMATOSIS WITH POLYANGIITIS
     Route: 065
  5. METHOTREXATE. [Suspect]
     Active Substance: METHOTREXATE
     Indication: PRODUCT USED FOR UNKNOWN INDICATION
     Route: 065
  6. INFLIXIMAB, RECOMBINANT [Suspect]
     Active Substance: INFLIXIMAB
     Indication: GRANULOMATOSIS WITH POLYANGIITIS
     Route: 042
  7. CYCLOPHOSPHAMIDE. [Suspect]
     Active Substance: CYCLOPHOSPHAMIDE
     Route: 065
  8. LAMIVUDINE. [Suspect]
     Active Substance: LAMIVUDINE
     Indication: PROPHYLAXIS
     Route: 065

REACTIONS (13)
  - Benign prostatic hyperplasia [Unknown]
  - Episcleritis [Unknown]
  - Testicular atrophy [Unknown]
  - Therapy non-responder [Unknown]
  - Product use in unapproved indication [Unknown]
  - Osteoporosis [Unknown]
  - Hepatitis B [Unknown]
  - Vasculitis [Unknown]
  - Disease recurrence [Unknown]
  - Granulomatosis with polyangiitis [Unknown]
  - Off label use [Unknown]
  - Pneumonia influenzal [Unknown]
  - Hepatic enzyme increased [Unknown]

NARRATIVE: CASE EVENT DATE: 2009
